FAERS Safety Report 23606912 (Version 2)
Quarter: 2024Q3

REPORT INFORMATION
  Report Type: Report from Study
  Country: BR (occurrence: BR)
  Receive Date: 20240307
  Receipt Date: 20240912
  Transmission Date: 20241017
  Serious: Yes (Hospitalization)
  Sender: NOVARTIS
  Company Number: BR-002147023-NVSC2024BR046101

PATIENT
  Sex: Female

DRUGS (1)
  1. RIBOCICLIB [Suspect]
     Active Substance: RIBOCICLIB
     Indication: Product used for unknown indication
     Dosage: UNK
     Route: 065

REACTIONS (15)
  - Pain [Not Recovered/Not Resolved]
  - Pulmonary mass [Unknown]
  - Obstructive airways disorder [Unknown]
  - Feeding disorder [Unknown]
  - Breast swelling [Unknown]
  - Axillary mass [Unknown]
  - Limb discomfort [Unknown]
  - Gait disturbance [Unknown]
  - Dysstasia [Unknown]
  - Malaise [Unknown]
  - Abdominal discomfort [Unknown]
  - Hepatic pain [Unknown]
  - Cough [Unknown]
  - Fatigue [Unknown]
  - Dyspnoea [Unknown]
